FAERS Safety Report 8618754 (Version 3)
Quarter: 2013Q2

REPORT INFORMATION
  Report Type: Spontaneous
  Country: CA (occurrence: CA)
  Receive Date: 20120618
  Receipt Date: 20130528
  Transmission Date: 20140414
  Serious: Yes (Other)
  Sender: FDA-Public Use
  Company Number: CA-JNJFOC-20120605022

PATIENT
  Age: 22 Year
  Sex: Female
  Weight: 49 kg

DRUGS (8)
  1. REMICADE [Suspect]
     Indication: PSORIATIC ARTHROPATHY
     Route: 042
     Dates: end: 20120608
  2. REMICADE [Suspect]
     Indication: PSORIATIC ARTHROPATHY
     Route: 042
     Dates: start: 20120229
  3. REMICADE [Suspect]
     Indication: PSORIATIC ARTHROPATHY
     Dosage: DOSE: 158 (UNITS NOT SPECIFIED)??PATIENT RECEIVED APPROXIMATELY 4 TOTAL NUMBER OF INFUSIONS
     Route: 042
     Dates: start: 20120216
  4. REMICADE [Suspect]
     Indication: RHEUMATOID ARTHRITIS
     Route: 042
     Dates: start: 20120229
  5. REMICADE [Suspect]
     Indication: RHEUMATOID ARTHRITIS
     Dosage: DOSE: 158 (UNITS NOT SPECIFIED)??PATIENT RECEIVED APPROXIMATELY 4 TOTAL NUMBER OF INFUSIONS
     Route: 042
     Dates: start: 20120216
  6. REMICADE [Suspect]
     Indication: RHEUMATOID ARTHRITIS
     Route: 042
     Dates: end: 20120608
  7. BENADRYL [Concomitant]
     Route: 042
  8. TYLENOL [Concomitant]
     Route: 048

REACTIONS (6)
  - Autonomic nervous system imbalance [Recovered/Resolved]
  - Dyspnoea [Recovering/Resolving]
  - Infusion related reaction [Recovered/Resolved]
  - Hypertension [Recovering/Resolving]
  - Swelling [Recovering/Resolving]
  - Erythema [Recovering/Resolving]
